FAERS Safety Report 4787355-3 (Version None)
Quarter: 2005Q4

REPORT INFORMATION
  Report Type: 
  Country: None (occurrence: None)
  Receive Date: 20051003
  Receipt Date: 20050921
  Transmission Date: 20060501
  Serious: Yes (Death)
  Sender: FDA-Public Use
  Company Number: HQWYE696728SEP05

PATIENT
  Age: 71 Year
  Sex: 0

DRUGS (1)
  1. CORDARONE [Suspect]

REACTIONS (1)
  - NONSPECIFIC REACTION [None]
